FAERS Safety Report 9193346 (Version 3)
Quarter: 2014Q1

REPORT INFORMATION
  Report Type: Spontaneous
  Country: US (occurrence: None)
  Receive Date: 20120703
  Receipt Date: 20130724
  Transmission Date: 20141002
  Serious: No
  Sender: FDA-Public Use
  Company Number: PHEH2012US005634

PATIENT
  Age: 60 Year
  Sex: Female

DRUGS (5)
  1. GILENYA [Suspect]
     Indication: MULTIPLE SCLEROSIS
     Route: 048
     Dates: start: 20120214, end: 20120403
  2. CLONAZEPAM ( CLONAZEPAM) [Concomitant]
  3. SEROQUEL XR ( QUETIAPINE FUMARATE) [Concomitant]
  4. RITALIN ( METHYLPHENIDATE HYDROCHLORIDE) [Concomitant]
  5. LEVORA ( ETHINYLESTRADIOL, LEVONORGESTREL) [Concomitant]

REACTIONS (4)
  - Dyskinesia [None]
  - Abdominal discomfort [None]
  - Blood pressure increased [None]
  - Diarrhoea [None]
